FAERS Safety Report 4379212-1 (Version None)
Quarter: 2004Q2

REPORT INFORMATION
  Report Type: 
  Country: None (occurrence: None)
  Receive Date: 20040617
  Receipt Date: 20040506
  Transmission Date: 20050107
  Serious: Yes (Hospitalization, Other)
  Sender: FDA-Public Use
  Company Number: 200413519US

PATIENT
  Sex: Male

DRUGS (1)
  1. TAXOTERE [Suspect]
     Indication: PROSTATE CANCER

REACTIONS (5)
  - BONE PAIN [None]
  - DISSEMINATED INTRAVASCULAR COAGULATION [None]
  - PROSTATIC SPECIFIC ANTIGEN INCREASED [None]
  - SUBCUTANEOUS HAEMATOMA [None]
  - SWELLING [None]
